FAERS Safety Report 7590797-4 (Version None)
Quarter: 2011Q3

REPORT INFORMATION
  Report Type: 
  Country: None (occurrence: None)
  Receive Date: 20110705
  Receipt Date: 20110623
  Transmission Date: 20111222
  Serious: Yes (Hospitalization)
  Sender: FDA-Public Use
  Company Number: JP-PFIZER INC-2011133669

PATIENT
  Age: 80 Year
  Sex: Male

DRUGS (3)
  1. LIPITOR [Suspect]
     Dosage: UNK
     Route: 048
     Dates: start: 20110301, end: 20110501
  2. CASODEX [Suspect]
     Dosage: UNK
     Dates: start: 20110301
  3. HUSTAZOL [Concomitant]

REACTIONS (2)
  - NASOPHARYNGITIS [None]
  - INTERSTITIAL LUNG DISEASE [None]
